FAERS Safety Report 12918237 (Version 4)
Quarter: 2017Q1

REPORT INFORMATION
  Report Type: Report from Study
  Country: US (occurrence: US)
  Receive Date: 20161107
  Receipt Date: 20170119
  Transmission Date: 20170428
  Serious: Yes (Death, Other)
  Sender: FDA-Public Use
  Company Number: US-009507513-1611USA000282

PATIENT
  Age: 66 Year
  Sex: Female
  Weight: 52.6 kg

DRUGS (1)
  1. KEYTRUDA [Suspect]
     Active Substance: PEMBROLIZUMAB
     Indication: TRIPLE NEGATIVE BREAST CANCER
     Dosage: 200 MG, ONCE
     Route: 042
     Dates: start: 20161005, end: 20161005

REACTIONS (2)
  - Malignant neoplasm progression [Fatal]
  - Product use issue [Unknown]

NARRATIVE: CASE EVENT DATE: 2016
